FAERS Safety Report 5209206-5 (Version None)
Quarter: 2007Q1

REPORT INFORMATION
  Report Type: 
  Country: None (occurrence: None)
  Receive Date: 20070111
  Receipt Date: 20060829
  Transmission Date: 20070707
  Serious: Yes (Death, Life-Threatening, Other)
  Sender: FDA-Public Use
  Company Number: 2006-04-0307

PATIENT
  Age: 79 Year
  Sex: Female
  Weight: 97.0698 kg

DRUGS (8)
  1. INTEGRILIN [Suspect]
     Indication: DRUG USE FOR UNKNOWN INDICATION
     Dosage: 9 ML ONCE IV ; 9 ML ONCE IV ; 16 ML QH IV
     Route: 042
     Dates: start: 20060324, end: 20060324
  2. INTEGRILIN [Suspect]
     Indication: DRUG USE FOR UNKNOWN INDICATION
     Dosage: 9 ML ONCE IV ; 9 ML ONCE IV ; 16 ML QH IV
     Route: 042
     Dates: start: 20060324, end: 20060324
  3. INTEGRILIN [Suspect]
     Indication: DRUG USE FOR UNKNOWN INDICATION
     Dosage: 9 ML ONCE IV ; 9 ML ONCE IV ; 16 ML QH IV
     Route: 042
     Dates: start: 20060324, end: 20060324
  4. ANGIOMAX [Suspect]
     Dosage: 15 M ONCE
     Dates: start: 20060324, end: 20060324
  5. LOPRESSOR [Concomitant]
  6. ASPIRIN [Concomitant]
  7. NEURONTIN [Concomitant]
  8. DIFLUCAN [Concomitant]

REACTIONS (11)
  - ACUTE CORONARY SYNDROME [None]
  - ACUTE MYOCARDIAL INFARCTION [None]
  - BLOOD PRESSURE INCREASED [None]
  - BRADYCARDIA [None]
  - CARDIAC ARREST [None]
  - CARDIAC PROCEDURE COMPLICATION [None]
  - CIRCULATORY COLLAPSE [None]
  - HEART RATE INCREASED [None]
  - HYPOTENSION [None]
  - INTERNATIONAL NORMALISED RATIO INCREASED [None]
  - THERAPEUTIC RESPONSE UNEXPECTED [None]
